FAERS Safety Report 25139017 (Version 2)
Quarter: 2025Q2

REPORT INFORMATION
  Report Type: Spontaneous
  Country: US (occurrence: US)
  Receive Date: 20250331
  Receipt Date: 20250527
  Transmission Date: 20250716
  Serious: No
  Sender: SANOFI AVENTIS
  Company Number: US-SA-2025SA091649

PATIENT
  Age: 69 Year
  Sex: Female
  Weight: 78.18 kg

DRUGS (8)
  1. DUPIXENT [Suspect]
     Active Substance: DUPILUMAB
     Indication: Dermatitis atopic
     Dosage: 300 MG, QOW
     Route: 058
  2. ACETAMINOPHEN\HYDROCODONE [Concomitant]
     Active Substance: ACETAMINOPHEN\HYDROCODONE
  3. RANOLAZINE [Concomitant]
     Active Substance: RANOLAZINE
  4. METHOCARBAMOL [Concomitant]
     Active Substance: METHOCARBAMOL
  5. ADAPALENE [Concomitant]
     Active Substance: ADAPALENE
  6. FAMOTIDINE [Concomitant]
     Active Substance: FAMOTIDINE
  7. CEPHALEXIN [Concomitant]
     Active Substance: CEPHALEXIN
  8. MAGNESIUM OXIDE [Concomitant]
     Active Substance: MAGNESIUM OXIDE

REACTIONS (6)
  - Intervertebral disc protrusion [Not Recovered/Not Resolved]
  - Dry skin [Unknown]
  - Rebound atopic dermatitis [Unknown]
  - Dermatitis atopic [Unknown]
  - Surgery [Unknown]
  - Rash [Recovering/Resolving]

NARRATIVE: CASE EVENT DATE: 20250101
